FAERS Safety Report 15688248 (Version 1)
Quarter: 2018Q4

REPORT INFORMATION
  Report Type: Spontaneous
  Country: US (occurrence: US)
  Receive Date: 20181205
  Receipt Date: 20181205
  Transmission Date: 20190205
  Serious: No
  Sender: FDA-Public Use
  Company Number: US-CIPLA LTD.-2018US22685

PATIENT

DRUGS (2)
  1. BUDESONIDE. [Suspect]
     Active Substance: BUDESONIDE
     Indication: ANOSMIA
     Dosage: 2 ML, BID
     Route: 045
     Dates: start: 20181102, end: 20181102
  2. BUDESONIDE. [Suspect]
     Active Substance: BUDESONIDE
     Indication: AGEUSIA

REACTIONS (4)
  - Tongue discomfort [Recovered/Resolved]
  - Glossitis [Recovered/Resolved]
  - Off label use [Unknown]
  - Product administration error [Unknown]

NARRATIVE: CASE EVENT DATE: 20181102
